FAERS Safety Report 23959578 (Version 1)
Quarter: 2024Q2

REPORT INFORMATION
  Report Type: Spontaneous
  Country: CA (occurrence: CA)
  Receive Date: 20240611
  Receipt Date: 20240611
  Transmission Date: 20240715
  Serious: Yes (Other)
  Sender: FDA-Public Use
  Company Number: CA-TEVA-VS-3207113

PATIENT
  Age: 52 Year
  Sex: Female

DRUGS (10)
  1. NALTREXONE [Suspect]
     Active Substance: NALTREXONE
     Indication: Pruritus
     Route: 065
  2. SERTRALINE [Suspect]
     Active Substance: SERTRALINE HYDROCHLORIDE
     Indication: Scar
     Route: 065
  3. SERTRALINE [Suspect]
     Active Substance: SERTRALINE HYDROCHLORIDE
     Indication: Scar
     Route: 065
  4. CHOLESTYRAMINE [Suspect]
     Active Substance: CHOLESTYRAMINE
     Indication: Pruritus
     Route: 065
  5. OCALIVA [Suspect]
     Active Substance: OBETICHOLIC ACID
     Indication: Primary biliary cholangitis
     Route: 048
  6. OCALIVA [Suspect]
     Active Substance: OBETICHOLIC ACID
     Indication: Primary biliary cholangitis
     Route: 048
  7. OCALIVA [Suspect]
     Active Substance: OBETICHOLIC ACID
     Indication: Primary biliary cholangitis
     Route: 048
  8. OCALIVA [Suspect]
     Active Substance: OBETICHOLIC ACID
     Indication: Primary biliary cholangitis
     Route: 048
  9. OCALIVA [Suspect]
     Active Substance: OBETICHOLIC ACID
     Indication: Primary biliary cholangitis
     Route: 048
  10. URSODIOL [Concomitant]
     Active Substance: URSODIOL
     Indication: Product used for unknown indication
     Route: 065

REACTIONS (15)
  - COVID-19 [Unknown]
  - Dizziness [Unknown]
  - Somnolence [Unknown]
  - Trance [Unknown]
  - Viral infection [Unknown]
  - Fatigue [Unknown]
  - Feeling abnormal [Unknown]
  - Constipation [Unknown]
  - Contusion [Unknown]
  - Insomnia [Unknown]
  - Paraesthesia [Unknown]
  - Pruritus [Unknown]
  - Pruritus [Unknown]
  - Rash [Unknown]
  - Scar [Unknown]
